FAERS Safety Report 7390176-9 (Version None)
Quarter: 2011Q2

REPORT INFORMATION
  Report Type: 
  Country: None (occurrence: None)
  Receive Date: 20110401
  Receipt Date: 20110329
  Transmission Date: 20111010
  Serious: Yes (Hospitalization)
  Sender: FDA-Public Use
  Company Number: PHHO2011DE05303

PATIENT
  Sex: Male
  Weight: 68.7 kg

DRUGS (15)
  1. ENALAPRIL MALEATE [Suspect]
     Indication: CARDIAC FAILURE CHRONIC
     Dosage: NO TREATMENT
  2. BLINDED NO TREATMENT RECEIVED [Suspect]
     Indication: CARDIAC FAILURE CHRONIC
     Dosage: NO TREATMENT
  3. ONBREZ [Concomitant]
     Indication: CHRONIC OBSTRUCTIVE PULMONARY DISEASE
  4. ENALAPRIL MALEATE [Suspect]
     Indication: CARDIAC FAILURE CHRONIC
     Dosage: CODE NOT BROKEN
     Route: 048
  5. XIPAMIDE [Concomitant]
     Indication: CARDIAC FAILURE
  6. LCZ696 [Suspect]
     Indication: CARDIAC FAILURE CHRONIC
     Dosage: CODE NOT BROKEN
     Route: 048
     Dates: start: 20110201, end: 20110218
  7. BLINDED LCZ696 [Suspect]
     Indication: CARDIAC FAILURE CHRONIC
     Dosage: NO TREATMENT
  8. TORSEMIDE [Concomitant]
     Indication: CARDIAC FAILURE
     Dosage: UNK
  9. SIMVASTATIN [Concomitant]
     Indication: CHRONIC OBSTRUCTIVE PULMONARY DISEASE
  10. SPIRIVA [Concomitant]
     Indication: CHRONIC OBSTRUCTIVE PULMONARY DISEASE
  11. PANTOZOL [Concomitant]
     Indication: GASTRITIS
  12. DOCITON [Concomitant]
     Indication: CARDIAC FAILURE
     Dosage: UNK
  13. RAMIPRIL [Concomitant]
     Indication: CARDIAC FAILURE
  14. ASPIRIN [Concomitant]
     Indication: CARDIAC FAILURE
  15. PREDNISOLONE [Concomitant]
     Indication: CHRONIC OBSTRUCTIVE PULMONARY DISEASE

REACTIONS (21)
  - CARDIAC FAILURE [None]
  - PULMONARY HYPERTENSION [None]
  - EXTRASYSTOLES [None]
  - ARRHYTHMIA [None]
  - LEFT VENTRICULAR HYPERTROPHY [None]
  - VENTRICULAR HYPOKINESIA [None]
  - HYPERKALAEMIA [None]
  - CARDIAC OUTPUT DECREASED [None]
  - CARDIOMEGALY [None]
  - LEFT ATRIAL DILATATION [None]
  - RALES [None]
  - VENTRICULAR EXTRASYSTOLES [None]
  - AORTIC DILATATION [None]
  - VENTRICULAR TACHYCARDIA [None]
  - CHRONIC OBSTRUCTIVE PULMONARY DISEASE [None]
  - DIASTOLIC DYSFUNCTION [None]
  - CARDIAC MURMUR [None]
  - ELECTROCARDIOGRAM ST-T CHANGE [None]
  - LEFT VENTRICULAR DYSFUNCTION [None]
  - DILATATION VENTRICULAR [None]
  - LEFT VENTRICULAR END-DIASTOLIC PRESSURE INCREASED [None]
